FAERS Safety Report 10068799 (Version 1)
Quarter: 2014Q2

REPORT INFORMATION
  Report Type: Spontaneous
  Country: US (occurrence: US)
  Receive Date: 20140409
  Receipt Date: 20140409
  Transmission Date: 20141212
  Serious: No
  Sender: FDA-Public Use
  Company Number: US-BAYER-2014-053060

PATIENT
  Age: 68 Year
  Sex: Male
  Weight: 144.67 kg

DRUGS (11)
  1. ALEVE CAPLET [Suspect]
     Indication: ANALGESIC THERAPY
     Dosage: 2 DF, PRN
     Route: 048
     Dates: start: 201401
  2. JANUVIA [Concomitant]
  3. ALTACE [Concomitant]
  4. ZOCOR [Concomitant]
  5. DYNACIRC [Concomitant]
  6. PROTONIX [Concomitant]
  7. HUMALOG [Concomitant]
  8. LANTUS [Concomitant]
  9. BAYER ASPIRIN REGIMEN ADULT LOW STRENGTH [Concomitant]
  10. CENTRUM SILVER [Concomitant]
  11. VITAMIN D3 [Concomitant]

REACTIONS (1)
  - Extra dose administered [None]
